FAERS Safety Report 22055471 (Version 1)
Quarter: 2023Q1

REPORT INFORMATION
  Report Type: Spontaneous
  Country: None (occurrence: CA)
  Receive Date: 20230302
  Receipt Date: 20230302
  Transmission Date: 20230418
  Serious: Yes (Other)
  Sender: FDA-Public Use
  Company Number: CA-B.Braun Medical Inc.-2138642

PATIENT
  Age: 70 Year
  Sex: Female

DRUGS (2)
  1. HEPARIN SODIUM IN DEXTROSE [Suspect]
     Active Substance: HEPARIN SODIUM
  2. KEYTRUDA [Suspect]
     Active Substance: PEMBROLIZUMAB
     Route: 042

REACTIONS (25)
  - Anxiety [Unknown]
  - Blood pressure increased [Unknown]
  - Cognitive disorder [Unknown]
  - Constipation [Unknown]
  - Decreased appetite [Unknown]
  - Depressed mood [Unknown]
  - Drug hypersensitivity [Unknown]
  - Dry mouth [Unknown]
  - Dyspepsia [Unknown]
  - Dyspnoea [Unknown]
  - Emotional disorder [Unknown]
  - Energy increased [Unknown]
  - Fatigue [Unknown]
  - Gastrooesophageal reflux disease [Unknown]
  - Haemoglobin decreased [Unknown]
  - Hypoaesthesia [Unknown]
  - Hypotension [Unknown]
  - Malaise [Unknown]
  - Nausea [Unknown]
  - Product use issue [Unknown]
  - Sleep disorder [Unknown]
  - Somnolence [Unknown]
  - Therapeutic response unexpected [Unknown]
  - Weight abnormal [Unknown]
  - White blood cell count decreased [Unknown]
